FAERS Safety Report 7420668-5 (Version None)
Quarter: 2011Q2

REPORT INFORMATION
  Report Type: 
  Country: None (occurrence: None)
  Receive Date: 20110418
  Receipt Date: 20110412
  Transmission Date: 20111010
  Serious: Yes (Hospitalization, Other)
  Sender: FDA-Public Use
  Company Number: US-ROCHE-728117

PATIENT
  Sex: Female
  Weight: 61.2 kg

DRUGS (7)
  1. PROMETHAZINE HCL AND CODEINE [Concomitant]
     Indication: COUGH
  2. TUSSIONEX [Concomitant]
     Indication: COUGH
  3. AMOXICILLIN [Concomitant]
  4. BENZONATATE [Concomitant]
     Indication: COUGH
  5. ACCUTANE [Suspect]
     Indication: ACNE
     Route: 048
     Dates: start: 20020813, end: 20021101
  6. GUAIFEN [Concomitant]
  7. METHYLPREDNISOLONE [Concomitant]

REACTIONS (4)
  - HAEMORRHOIDS [None]
  - INFLAMMATORY BOWEL DISEASE [None]
  - CROHN'S DISEASE [None]
  - IRRITABLE BOWEL SYNDROME [None]
